FAERS Safety Report 8243673-8 (Version None)
Quarter: 2012Q1

REPORT INFORMATION
  Report Type: 
  Country: None (occurrence: None)
  Receive Date: 20120329
  Receipt Date: 20120327
  Transmission Date: 20120608
  Serious: No
  Sender: FDA-Public Use
  Company Number: US-PFIZER INC-2012078896

PATIENT
  Sex: Male

DRUGS (4)
  1. DILANTIN [Suspect]
     Dosage: FIVE CAPSULES OF 100MG A DAY
     Route: 048
  2. PHENOBARBITAL [Suspect]
     Dosage: 60 MG, 2X/DAY
  3. ROBITUSSIN LINGERING COLD LONG-ACTING COUGH [Suspect]
     Indication: NASOPHARYNGITIS
     Dosage: UNK
     Route: 048
     Dates: start: 20120324
  4. ROBITUSSIN LINGERING COLD LONG-ACTING COUGH [Suspect]
     Indication: COUGH

REACTIONS (3)
  - SENSATION OF FOREIGN BODY [None]
  - LIP SWELLING [None]
  - COUGH [None]
